FAERS Safety Report 6685427-X (Version None)
Quarter: 2010Q2

REPORT INFORMATION
  Report Type: 
  Country: None (occurrence: None)
  Receive Date: 20100418
  Receipt Date: 20100408
  Transmission Date: 20101027
  Serious: Yes (Death, Hospitalization, Other)
  Sender: FDA-Public Use
  Company Number: TH-BRISTOL-MYERS SQUIBB COMPANY-15063662

PATIENT
  Age: 57 Year
  Sex: Male
  Weight: 41 kg

DRUGS (2)
  1. CETUXIMAB [Suspect]
     Indication: OESOPHAGEAL SQUAMOUS CELL CARCINOMA
     Dosage: 24FEB2010-07MAR2010:150 MG/M2 17MAR2010-29MAR2010:150 MG/M2 (11 D) RECENT INF:17MAR2010
     Route: 042
     Dates: start: 20100224, end: 20100329
  2. CISPLATIN [Suspect]
     Indication: OESOPHAGEAL SQUAMOUS CELL CARCINOMA
     Dosage: RECENT INF:17MAR2010
     Route: 042
     Dates: start: 20100224, end: 20100317

REACTIONS (2)
  - DIARRHOEA [None]
  - FEEDING TUBE COMPLICATION [None]
